FAERS Safety Report 9349734 (Version 1)
Quarter: 2013Q2

REPORT INFORMATION
  Report Type: Spontaneous
  Country: US (occurrence: US)
  Receive Date: 20130614
  Receipt Date: 20130614
  Transmission Date: 20140414
  Serious: Yes (Other)
  Sender: FDA-Public Use
  Company Number: US-PFIZER INC-2013180775

PATIENT
  Sex: Female

DRUGS (2)
  1. PROPANOLOL HCL [Suspect]
     Indication: TORSADE DE POINTES
     Dosage: 80 MG, UNK
  2. MEXILETINE [Suspect]
     Indication: TORSADE DE POINTES

REACTIONS (2)
  - Cardiac pacemaker insertion [Unknown]
  - Drug ineffective for unapproved indication [Unknown]
